FAERS Safety Report 23334845 (Version 3)
Quarter: 2024Q1

REPORT INFORMATION
  Report Type: Spontaneous
  Country: ES (occurrence: ES)
  Receive Date: 20231224
  Receipt Date: 20240219
  Transmission Date: 20240410
  Serious: Yes (Hospitalization, Other)
  Sender: FDA-Public Use
  Company Number: ES-SAKK-2023SA393857AA

PATIENT

DRUGS (6)
  1. ALPROLIX [Suspect]
     Active Substance: EFTRENONACOG ALFA
     Dosage: UNK UNK, QW
     Route: 065
  2. ALPROLIX [Suspect]
     Active Substance: EFTRENONACOG ALFA
     Dosage: UNK UNK, QW
     Route: 065
  3. ALPROLIX [Suspect]
     Active Substance: EFTRENONACOG ALFA
     Dosage: UNK, BIW
     Route: 065
     Dates: start: 202311
  4. ALPROLIX [Suspect]
     Active Substance: EFTRENONACOG ALFA
     Dosage: UNK, BIW
     Route: 065
     Dates: start: 202311
  5. ALPROLIX [Suspect]
     Active Substance: EFTRENONACOG ALFA
     Dosage: UNK, QW
     Route: 065
  6. ALPROLIX [Suspect]
     Active Substance: EFTRENONACOG ALFA
     Dosage: UNK, QW
     Route: 065

REACTIONS (3)
  - Gastrointestinal haemorrhage [Unknown]
  - Upper gastrointestinal haemorrhage [Unknown]
  - Intestinal polyp [Unknown]

NARRATIVE: CASE EVENT DATE: 20231101
